FAERS Safety Report 23340993 (Version 1)
Quarter: 2023Q4

REPORT INFORMATION
  Report Type: Spontaneous
  Country: CH (occurrence: CH)
  Receive Date: 20231227
  Receipt Date: 20231227
  Transmission Date: 20240109
  Serious: Yes (Other)
  Sender: FDA-Public Use
  Company Number: CH-ALKEM LABORATORIES LIMITED-CH-ALKEM-2023-15442

PATIENT
  Age: 6 Month

DRUGS (5)
  1. VIGABATRIN [Suspect]
     Active Substance: VIGABATRIN
     Indication: Infantile spasms
     Dosage: 150 MILLIGRAM/KILOGRAM, QD
     Route: 065
  2. Synacthen [Concomitant]
     Indication: Infantile spasms
     Dosage: 0.025 MILLIGRAM/KILOGRAM, QD (LOW-DOSE SYNACTHEN)
     Route: 065
  3. METHYLPREDNISOLONE [Concomitant]
     Active Substance: METHYLPREDNISOLONE
     Indication: Infantile spasms
     Dosage: 15 MILLIGRAM/KILOGRAM, QD
     Route: 065
  4. SULTHIAME [Concomitant]
     Active Substance: SULTHIAME
     Indication: Infantile spasms
     Dosage: UNK
     Route: 065
  5. VALPROIC ACID [Concomitant]
     Active Substance: VALPROIC ACID
     Indication: Infantile spasms
     Dosage: UNK
     Route: 065

REACTIONS (5)
  - Dystonia [Recovering/Resolving]
  - Encephalopathy [Recovering/Resolving]
  - Hypotonia [Recovering/Resolving]
  - Magnetic resonance imaging head abnormal [Recovering/Resolving]
  - Tremor [Recovering/Resolving]
